FAERS Safety Report 6788464-X (Version None)
Quarter: 2010Q2

REPORT INFORMATION
  Report Type: 
  Country: None (occurrence: None)
  Receive Date: 20100623
  Receipt Date: 20080415
  Transmission Date: 20101027
  Serious: Yes (Other)
  Sender: FDA-Public Use
  Company Number: US-PFIZER INC-2008021330

PATIENT
  Age: 35 Year
  Sex: Female
  Weight: 68.5 kg

DRUGS (2)
  1. MEDROXYPROGESTERONE ACETATE [Suspect]
     Indication: CONTRACEPTION
     Dosage: INJECTION
     Route: 030
     Dates: start: 20071211, end: 20071211
  2. MEDROXYPROGESTERONE ACETATE [Suspect]
     Dosage: MOST RECENT INJECTION
     Route: 030
     Dates: start: 20080226, end: 20080226

REACTIONS (3)
  - AMENORRHOEA [None]
  - DRUG INEFFECTIVE [None]
  - UNINTENDED PREGNANCY [None]
